FAERS Safety Report 5319555-8 (Version None)
Quarter: 2007Q2

REPORT INFORMATION
  Report Type: 
  Country: None (occurrence: None)
  Receive Date: 20070508
  Receipt Date: 20070427
  Transmission Date: 20071010
  Serious: Yes (Hospitalization)
  Sender: FDA-Public Use
  Company Number: US-ELI_LILLY_AND_COMPANY-US200704006438

PATIENT
  Age: 83 Year
  Sex: Female

DRUGS (9)
  1. FORTEO [Suspect]
     Indication: OSTEOPOROSIS
     Dates: start: 20051201
  2. CALCIUM CHLORIDE [Concomitant]
     Dosage: 600 MG, 2/D
  3. CENTRUM [Concomitant]
     Dosage: UNK, DAILY (1/D)
  4. LOPRESSOR [Concomitant]
     Indication: CARDIAC DISORDER
     Dosage: 2 MG, 2/D
  5. CRESTOR [Concomitant]
     Indication: HYPERTENSION
     Dosage: 10 MG, UNK
  6. BENICAR HCT [Concomitant]
     Dosage: 1 D/F, EACH EVENING
  7. TYLENOL /USA/ [Concomitant]
     Indication: BACK PAIN
  8. ASPIRIN [Concomitant]
     Dosage: 81 MG, UNK
  9. ATIVAN [Concomitant]
     Indication: SLEEP DISORDER
     Dosage: 0.5 MG, UNK

REACTIONS (8)
  - ABDOMINAL PAIN UPPER [None]
  - BACK PAIN [None]
  - CHOLECYSTECTOMY [None]
  - CONSTIPATION [None]
  - CORONARY ARTERY OCCLUSION [None]
  - PNEUMONIA [None]
  - TACHYCARDIA [None]
  - URINARY RETENTION [None]
